FAERS Safety Report 12083445 (Version 4)
Quarter: 2016Q1

REPORT INFORMATION
  Report Type: Spontaneous
  Country: US (occurrence: US)
  Receive Date: 20160217
  Receipt Date: 20160330
  Transmission Date: 20160526
  Serious: Yes (Other)
  Sender: FDA-Public Use
  Company Number: US-PFIZER INC-2016071821

PATIENT
  Age: 66 Year
  Sex: Male

DRUGS (3)
  1. TEGRETOL CR [Suspect]
     Active Substance: CARBAMAZEPINE
     Dosage: 200, 2X/DAY
  2. ELIQUIS [Suspect]
     Active Substance: APIXABAN
     Indication: THROMBOSIS PROPHYLAXIS
     Dosage: 10 MG, UNK
  3. PHENYTOIN. [Suspect]
     Active Substance: PHENYTOIN
     Dosage: 200 MG, 1X/DAY

REACTIONS (1)
  - Gastrointestinal arteriovenous malformation [Unknown]
